FAERS Safety Report 10070931 (Version 1)
Quarter: 2014Q2

REPORT INFORMATION
  Report Type: Spontaneous
  Country: US (occurrence: US)
  Receive Date: 20140410
  Receipt Date: 20140410
  Transmission Date: 20141212
  Serious: Yes (Other)
  Sender: FDA-Public Use
  Company Number: PHHY2014US041611

PATIENT
  Age: 65 Year
  Sex: Female
  Weight: 85 kg

DRUGS (16)
  1. VALPROIC ACID [Suspect]
     Indication: PROPHYLAXIS
     Dosage: 250 MG, BID
  2. WARFARIN [Interacting]
     Indication: ANTICOAGULANT THERAPY
     Dosage: 22.5 MG, WEEKLY
  3. WARFARIN [Interacting]
     Dosage: 2.5 MG, DAILY
  4. WARFARIN [Interacting]
     Dosage: 22.5 MG, WEEKLY
  5. AMITRIPTYLINE [Concomitant]
     Dosage: 12.5 MG, DAILY
  6. IRBESARTAN [Concomitant]
     Dosage: 150 MG, DAILY
  7. BOTULINUM TOXIN TYPE A [Concomitant]
     Dosage: 100 U, EVERY 3 MONTHS
     Route: 030
  8. CENTRUM [Concomitant]
  9. BISACODYL [Concomitant]
     Dosage: 10 MG, PRN
  10. DOCUSATE SODIUM [Concomitant]
     Dosage: 100 MG, BID
  11. DIGOXIN [Concomitant]
     Dosage: 125 UG, DAILY
  12. METFORMIN [Concomitant]
     Dosage: 1000 MG, BID
  13. CALCIUM CARBONATE AND VITAMIN D [Concomitant]
  14. PAROXETINE [Concomitant]
     Dosage: 40 MG, DAILY
  15. SIMVASTATIN [Concomitant]
     Dosage: 20 MG, DAILY
  16. HEPARIN [Concomitant]

REACTIONS (3)
  - International normalised ratio decreased [Recovered/Resolved]
  - Drug interaction [Unknown]
  - Fatigue [Unknown]
